FAERS Safety Report 7709327-9 (Version None)
Quarter: 2011Q3

REPORT INFORMATION
  Report Type: 
  Country: None (occurrence: None)
  Receive Date: 20110825
  Receipt Date: 20110817
  Transmission Date: 20111222
  Serious: Yes (Hospitalization, Other)
  Sender: FDA-Public Use
  Company Number: US-SANOFI-AVENTIS-2011SA053882

PATIENT
  Age: 42 Year
  Sex: Male

DRUGS (8)
  1. AVANDIA [Suspect]
     Route: 065
  2. VIAGRA [Suspect]
     Route: 065
  3. LANTUS [Concomitant]
  4. AMARYL [Suspect]
     Route: 065
  5. METFORMIN HCL [Concomitant]
  6. ACCUPRIL [Suspect]
     Route: 065
  7. GLYSET [Suspect]
     Route: 065
  8. GLUCOPHAGE [Suspect]
     Route: 065

REACTIONS (2)
  - CHEST PAIN [None]
  - CORONARY ARTERY OCCLUSION [None]
